FAERS Safety Report 14581045 (Version 2)
Quarter: 2018Q1

REPORT INFORMATION
  Report Type: Spontaneous
  Country: US (occurrence: US)
  Receive Date: 20180228
  Receipt Date: 20180321
  Transmission Date: 20180509
  Serious: No
  Sender: FDA-Public Use
  Company Number: US-PFIZER INC-2018082236

PATIENT
  Age: 62 Year
  Sex: Female
  Weight: 116 kg

DRUGS (1)
  1. XELJANZ [Suspect]
     Active Substance: TOFACITINIB CITRATE
     Indication: RHEUMATOID ARTHRITIS
     Dosage: 5 MG, 1X/DAY
     Dates: start: 2017

REACTIONS (2)
  - Body height decreased [Unknown]
  - Blood cholesterol abnormal [Not Recovered/Not Resolved]
